FAERS Safety Report 7276680-2 (Version None)
Quarter: 2011Q1

REPORT INFORMATION
  Report Type: 
  Country: None (occurrence: None)
  Receive Date: 20110204
  Receipt Date: 20110202
  Transmission Date: 20110831
  Serious: Yes (Life-Threatening, Hospitalization)
  Sender: FDA-Public Use
  Company Number: DE-MERCK-1102DEU00018

PATIENT
  Age: 42 Year
  Sex: Male

DRUGS (1)
  1. VYTORIN [Suspect]
     Indication: CORONARY ARTERY DISEASE
     Route: 048
     Dates: start: 20101112, end: 20110110

REACTIONS (5)
  - BLOOD BILIRUBIN INCREASED [None]
  - JAUNDICE [None]
  - HEPATITIS [None]
  - ADVERSE EVENT [None]
  - LIVER DISORDER [None]
